FAERS Safety Report 4285704-6 (Version None)
Quarter: 2004Q1

REPORT INFORMATION
  Report Type: 
  Country: None (occurrence: None)
  Receive Date: 20040203
  Receipt Date: 20040123
  Transmission Date: 20041129
  Serious: Yes (Death)
  Sender: FDA-Public Use
  Company Number: 2004SE00365

PATIENT
  Age: 36 Year
  Sex: Male
  Weight: 140 kg

DRUGS (4)
  1. SEROQUEL [Suspect]
     Indication: SCHIZOPHRENIA
     Dosage: 550 MG DAILY PO
     Route: 048
     Dates: start: 20031220
  2. DIAZEPAM [Concomitant]
  3. PROMAZIN [Concomitant]
  4. FLUPHENAZINE [Concomitant]

REACTIONS (1)
  - COMPLETED SUICIDE [None]
